FAERS Safety Report 6694528-1 (Version None)
Quarter: 2010Q2

REPORT INFORMATION
  Report Type: 
  Country: None (occurrence: None)
  Receive Date: 20100423
  Receipt Date: 20100421
  Transmission Date: 20101027
  Serious: Yes (Death)
  Sender: FDA-Public Use
  Company Number: JP-SANOFI-AVENTIS-2010SA023178

PATIENT
  Age: 83 Year
  Sex: Female
  Weight: 36 kg

DRUGS (5)
  1. PLAVIX [Suspect]
     Indication: LACUNAR INFARCTION
     Route: 048
     Dates: start: 20070224, end: 20070422
  2. VASOLAN [Concomitant]
     Dosage: 1 TABLETS X3
  3. TAKEPRON [Concomitant]
     Route: 048
  4. FUROSEMIDE [Concomitant]
     Route: 042
  5. FRANDOL [Concomitant]
     Route: 062

REACTIONS (1)
  - DEATH [None]
